FAERS Safety Report 11475335 (Version 1)
Quarter: 2015Q3

REPORT INFORMATION
  Report Type: Spontaneous
  Country: BR (occurrence: BR)
  Receive Date: 20150909
  Receipt Date: 20150909
  Transmission Date: 20151125
  Serious: Yes (Other)
  Sender: FDA-Public Use
  Company Number: BR-PFIZER INC-2015251151

PATIENT
  Age: 68 Year
  Sex: Male

DRUGS (3)
  1. HELLEVA [Suspect]
     Active Substance: LODENAFIL CARBONATE
     Indication: ERECTILE DYSFUNCTION
     Dosage: 80 MG, AS NEEDED (BEFORE SEXUAL INTERCOURSE)
     Route: 048
     Dates: start: 2014, end: 201503
  2. VIAGRA [Suspect]
     Active Substance: SILDENAFIL CITRATE
     Indication: ERECTILE DYSFUNCTION
     Dosage: 50 MG, AS NEEDED (BEFORE SEXUAL INTERCOURSE)
     Route: 048
     Dates: start: 2014, end: 201503
  3. LEVITRA [Suspect]
     Active Substance: VARDENAFIL HYDROCHLORIDE TRIHYDRATE
     Indication: ERECTILE DYSFUNCTION
     Dosage: 20 MG, AS NEEDED (BEFORE SEXUAL INTERCOURSE)
     Route: 048
     Dates: start: 2014, end: 201503

REACTIONS (5)
  - Presyncope [Recovered/Resolved]
  - Ocular hyperaemia [Not Recovered/Not Resolved]
  - Cold sweat [Recovered/Resolved]
  - Foreign body sensation in eyes [Recovered/Resolved]
  - Vision blurred [Not Recovered/Not Resolved]

NARRATIVE: CASE EVENT DATE: 2014
